FAERS Safety Report 7077095-2 (Version None)
Quarter: 2010Q4

REPORT INFORMATION
  Report Type: 
  Country: None (occurrence: None)
  Receive Date: 20101101
  Receipt Date: 20101021
  Transmission Date: 20110411
  Serious: Yes (Other)
  Sender: FDA-Public Use
  Company Number: US-ROCHE-736244

PATIENT
  Sex: Female
  Weight: 46.7 kg

DRUGS (4)
  1. ACTEMRA [Suspect]
     Dosage: FORM: INFUSION
     Route: 042
     Dates: start: 20100825, end: 20100825
  2. ACTEMRA [Suspect]
     Route: 042
     Dates: start: 20100922, end: 20100922
  3. ACTEMRA [Suspect]
     Route: 042
     Dates: start: 20101020, end: 20101020
  4. METHOTREXATE [Concomitant]

REACTIONS (4)
  - CHEST DISCOMFORT [None]
  - CHEST PAIN [None]
  - HYPOTENSION [None]
  - OEDEMA PERIPHERAL [None]
